FAERS Safety Report 8598983-1 (Version None)
Quarter: 2012Q3

REPORT INFORMATION
  Report Type: 
  Country: None (occurrence: None)
  Receive Date: 20120816
  Receipt Date: 20120809
  Transmission Date: 20120928
  Serious: Yes (Death, Other)
  Sender: FDA-Public Use
  Company Number: DE-ROCHE-1100987

PATIENT
  Age: 83 Year

DRUGS (1)
  1. XELODA [Suspect]
     Indication: COLORECTAL CANCER

REACTIONS (6)
  - SPEECH DISORDER [None]
  - GENERAL PHYSICAL HEALTH DETERIORATION [None]
  - GASTROENTERITIS NOROVIRUS [None]
  - BALANCE DISORDER [None]
  - ACUTE PRERENAL FAILURE [None]
  - NEOPLASM MALIGNANT [None]
